FAERS Safety Report 9792513 (Version 1)
Quarter: 2014Q1

REPORT INFORMATION
  Report Type: Report from Study
  Country: CO (occurrence: CO)
  Receive Date: 20140102
  Receipt Date: 20140102
  Transmission Date: 20141002
  Serious: Yes (Hospitalization)
  Sender: FDA-Public Use
  Company Number: CO-ABBVIE-13P-036-1184950-00

PATIENT
  Age: 23 Year
  Sex: Male
  Weight: 91 kg

DRUGS (2)
  1. HUMIRA [Suspect]
     Indication: PSORIASIS
     Route: 058
     Dates: start: 20121003
  2. HUMIRA [Suspect]
     Route: 058
     Dates: start: 20131125

REACTIONS (2)
  - Aggression [Recovering/Resolving]
  - Psoriasis [Recovering/Resolving]
